FAERS Safety Report 6644278-2 (Version None)
Quarter: 2010Q1

REPORT INFORMATION
  Report Type: 
  Country: None (occurrence: None)
  Receive Date: 20100319
  Receipt Date: 20100319
  Transmission Date: 20100710
  Serious: Yes (Hospitalization)
  Sender: FDA-Public Use
  Company Number: None

PATIENT
  Age: 69 Year
  Weight: 65 kg

DRUGS (17)
  1. COUMADIN [Suspect]
     Indication: CORONARY ARTERY DISEASE
     Dosage: 5MG (?2) DAILY PO  CHRONIC
     Route: 048
  2. ADVAIR DISKUS 100/50 [Concomitant]
  3. SINGULAIR [Concomitant]
  4. ALLEGRA [Concomitant]
  5. ACTOS [Concomitant]
  6. RANITIDINE [Concomitant]
  7. AMARYL [Concomitant]
  8. TYLENOL (CAPLET) [Concomitant]
  9. CREAM [Concomitant]
  10. JANUVIA [Concomitant]
  11. LASIX [Concomitant]
  12. VIT D [Concomitant]
  13. PROTONIX [Concomitant]
  14. COLESTEPOL [Concomitant]
  15. PENICILLIN [Concomitant]
  16. CARVEDILO [Concomitant]
  17. PLAVIX [Suspect]
     Indication: CORONARY ARTERY DISEASE
     Dosage: 5.5 MG DAILY PO CHRONIC
     Route: 048

REACTIONS (9)
  - ANAEMIA [None]
  - COAGULOPATHY [None]
  - DUODENAL ULCER [None]
  - ENDOCARDITIS [None]
  - GASTRIC ULCER [None]
  - INTERNATIONAL NORMALISED RATIO INCREASED [None]
  - OESOPHAGITIS [None]
  - RENAL FAILURE ACUTE [None]
  - UPPER GASTROINTESTINAL HAEMORRHAGE [None]
